FAERS Safety Report 21935230 (Version 1)
Quarter: 2023Q1

REPORT INFORMATION
  Report Type: Spontaneous
  Country: ES (occurrence: ES)
  Receive Date: 20230201
  Receipt Date: 20230201
  Transmission Date: 20230417
  Serious: Yes (Death, Hospitalization)
  Sender: FDA-Public Use
  Company Number: ES-Accord-298394

PATIENT
  Age: 60 Year
  Sex: Male
  Weight: 49.30 kg

DRUGS (2)
  1. CARBOPLATIN [Suspect]
     Active Substance: CARBOPLATIN
     Indication: Anal squamous cell carcinoma
     Dosage: AUC 5 Q4W
     Route: 042
     Dates: start: 20221223, end: 20221223
  2. PACLITAXEL [Suspect]
     Active Substance: PACLITAXEL
     Indication: Anal squamous cell carcinoma
     Dosage: (DAYS 1, 8, 15 OF EACH 28-DAY CYCLE);
     Route: 042
     Dates: start: 20221223, end: 20221230

REACTIONS (1)
  - Pancytopenia [Fatal]

NARRATIVE: CASE EVENT DATE: 20230105
